FAERS Safety Report 14152213 (Version 1)
Quarter: 2017Q4

REPORT INFORMATION
  Report Type: Spontaneous
  Country: US (occurrence: US)
  Receive Date: 20171102
  Receipt Date: 20171102
  Transmission Date: 20180321
  Serious: Yes (Hospitalization)
  Sender: FDA-Public Use
  Company Number: US-AMGEN-USASP2017161383

PATIENT
  Sex: Male

DRUGS (2)
  1. NPLATE [Suspect]
     Active Substance: ROMIPLOSTIM
     Indication: IMMUNE THROMBOCYTOPENIC PURPURA
     Dosage: UNK MUG/KG, UNK
     Route: 065
     Dates: start: 2017
  2. NPLATE [Suspect]
     Active Substance: ROMIPLOSTIM
     Dosage: 1 MUG/KG, UNK
     Route: 065

REACTIONS (3)
  - Hypoaesthesia [Recovering/Resolving]
  - Platelet count abnormal [Recovering/Resolving]
  - Muscular weakness [Recovering/Resolving]

NARRATIVE: CASE EVENT DATE: 2017
